FAERS Safety Report 15301293 (Version 1)
Quarter: 2018Q3

REPORT INFORMATION
  Report Type: Spontaneous
  Country: US (occurrence: US)
  Receive Date: 20180821
  Receipt Date: 20180821
  Transmission Date: 20181010
  Serious: No
  Sender: FDA-Public Use
  Company Number: US-MALLINCKRODT-T201703124

PATIENT
  Sex: Female

DRUGS (2)
  1. OXYCODONE/ACETAMINOPHEN [Suspect]
     Active Substance: ACETAMINOPHEN\OXYCODONE HYDROCHLORIDE
     Indication: PAIN
     Dosage: 1/2 TABLET THREE TIMES A DAY OR 3/4 TABLET ONCE A DAY
  2. TRAMADOL. [Suspect]
     Active Substance: TRAMADOL
     Indication: PAIN

REACTIONS (4)
  - Neurological symptom [Unknown]
  - Insomnia [Unknown]
  - Drug ineffective [Unknown]
  - Malaise [Unknown]
